FAERS Safety Report 4322184-6 (Version None)
Quarter: 2004Q1

REPORT INFORMATION
  Report Type: 
  Country: None (occurrence: None)
  Receive Date: 20040319
  Receipt Date: 20040305
  Transmission Date: 20041129
  Serious: Yes (Hospitalization)
  Sender: FDA-Public Use
  Company Number: 2004017048

PATIENT
  Age: 68 Year
  Sex: Male
  Weight: 117.9352 kg

DRUGS (4)
  1. LIPITOR [Suspect]
     Indication: CORONARY ARTERY DISEASE
  2. FOSINOPRIL SODIUM [Concomitant]
  3. TERAZOSIN HYDROCHLORIDE [Concomitant]
  4. ALL OTHER THERAPEUTIC PRODUCTS [Concomitant]

REACTIONS (8)
  - BENIGN PROSTATIC HYPERPLASIA [None]
  - DIABETES MELLITUS [None]
  - HAEMOGLOBIN DECREASED [None]
  - HEPATIC STEATOSIS [None]
  - HEPATITIS C [None]
  - HYPERLIPIDAEMIA [None]
  - HYPERTENSION [None]
  - OSTEOARTHRITIS [None]
